FAERS Safety Report 17554654 (Version 6)
Quarter: 2021Q1

REPORT INFORMATION
  Report Type: Report from Study
  Country: US (occurrence: US)
  Receive Date: 20200318
  Receipt Date: 20210122
  Transmission Date: 20210419
  Serious: Yes (Other)
  Sender: FDA-Public Use
  Company Number: NVSC2020US072932

PATIENT
  Sex: Female

DRUGS (1)
  1. COSENTYX [Suspect]
     Active Substance: SECUKINUMAB
     Indication: PRODUCT USED FOR UNKNOWN INDICATION
     Dosage: UNK
     Route: 065

REACTIONS (7)
  - Psoriasis [Unknown]
  - Product dose omission issue [Unknown]
  - Hepatic failure [Unknown]
  - Product use in unapproved indication [Unknown]
  - Psoriatic arthropathy [Unknown]
  - Diabetes mellitus [Unknown]
  - Headache [Unknown]
